FAERS Safety Report 14687432 (Version 1)
Quarter: 2018Q1

REPORT INFORMATION
  Report Type: Spontaneous
  Country: JP (occurrence: JP)
  Receive Date: 20180328
  Receipt Date: 20180328
  Transmission Date: 20180509
  Serious: Yes (Hospitalization)
  Sender: FDA-Public Use
  Company Number: JP-INGENUS PHARMACEUTICALS, LLC-INF201803-000226

PATIENT
  Age: 63 Year
  Sex: Female

DRUGS (6)
  1. SODIUM BICARBONATE. [Concomitant]
     Active Substance: SODIUM BICARBONATE
     Indication: METABOLIC ACIDOSIS
  2. HEPARIN [Concomitant]
     Active Substance: HEPARIN SODIUM
     Indication: PULMONARY EMBOLISM
  3. CALCIUM GLUCONATE. [Concomitant]
     Active Substance: CALCIUM GLUCONATE
     Indication: HYPERKALAEMIA
  4. DOCETAXEL. [Suspect]
     Active Substance: DOCETAXEL
     Indication: NEUROPATHY PERIPHERAL
  5. CARBOPLATIN. [Suspect]
     Active Substance: CARBOPLATIN
     Indication: UTERINE CANCER
  6. PACLITAXEL. [Concomitant]
     Active Substance: PACLITAXEL
     Indication: UTERINE CANCER

REACTIONS (6)
  - Right ventricular failure [Not Recovered/Not Resolved]
  - Product use in unapproved indication [Unknown]
  - Tumour lysis syndrome [Not Recovered/Not Resolved]
  - Pulmonary embolism [Not Recovered/Not Resolved]
  - Renal injury [Not Recovered/Not Resolved]
  - Obstructive shock [Not Recovered/Not Resolved]
